FAERS Safety Report 23227368 (Version 1)
Quarter: 2023Q4

REPORT INFORMATION
  Report Type: Spontaneous
  Country: CN (occurrence: CN)
  Receive Date: 20231124
  Receipt Date: 20231124
  Transmission Date: 20240110
  Serious: Yes (Other)
  Sender: FDA-Public Use
  Company Number: CN-009507513-2311CHN008465

PATIENT
  Age: 68 Year
  Sex: Male

DRUGS (4)
  1. KEYTRUDA [Suspect]
     Active Substance: PEMBROLIZUMAB
     Indication: Hypopharyngeal cancer
     Dosage: 200 MG, ONCE
     Route: 041
     Dates: start: 20231023, end: 20231023
  2. XELODA [Suspect]
     Active Substance: CAPECITABINE
     Indication: Hypopharyngeal cancer
     Dosage: 1.5 GRAM, BID
     Route: 048
     Dates: start: 20231023, end: 20231105
  3. CARBOPLATIN [Suspect]
     Active Substance: CARBOPLATIN
     Indication: Hypopharyngeal cancer
     Dosage: 400 MG, QD
     Route: 041
     Dates: start: 20231025, end: 20231025
  4. PACLITAXEL [Suspect]
     Active Substance: PACLITAXEL
     Indication: Hypopharyngeal cancer
     Dosage: 200 MG, QD
     Route: 041
     Dates: start: 20231025, end: 20231025

REACTIONS (2)
  - Myelosuppression [Recovered/Resolved]
  - Product use issue [Unknown]

NARRATIVE: CASE EVENT DATE: 20231023
